FAERS Safety Report 7290844-3 (Version None)
Quarter: 2011Q1

REPORT INFORMATION
  Report Type: 
  Country: None (occurrence: None)
  Receive Date: 20110214
  Receipt Date: 20110208
  Transmission Date: 20110831
  Serious: Yes (Death)
  Sender: FDA-Public Use
  Company Number: US-BRACCO-005662

PATIENT
  Sex: Female

DRUGS (2)
  1. ISOVUE-128 [Suspect]
     Indication: GASTROSTOMY TUBE INSERTION
     Dates: start: 20101208, end: 20101208
  2. ISOVUE-128 [Suspect]
     Indication: COMPUTERISED TOMOGRAM
     Dates: start: 20101208, end: 20101208

REACTIONS (2)
  - DYSPNOEA [None]
  - LOSS OF CONSCIOUSNESS [None]
